FAERS Safety Report 8560111-6 (Version None)
Quarter: 2012Q3

REPORT INFORMATION
  Report Type: 
  Country: None (occurrence: None)
  Receive Date: 20120802
  Receipt Date: 20120724
  Transmission Date: 20120928
  Serious: Yes (Hospitalization)
  Sender: FDA-Public Use
  Company Number: JP-SANOFI-AVENTIS-2011SA075466

PATIENT
  Age: 26 Year
  Sex: Female
  Weight: 46 kg

DRUGS (4)
  1. DIPHENHYDRAMINE HCL [Interacting]
     Dosage: 6 TABLETS OF 500 MG EACH
     Route: 048
  2. ZOLPIDEM TARTRATE [Suspect]
     Dosage: 14 TABLETS OF 5 MG
     Route: 048
  3. PAROXETINE HCL [Interacting]
     Dosage: 14 TABLETS OF 10 MG EACH
     Route: 048
  4. MOSAPRIDE [Interacting]
     Dosage: 14 TABLETS OF 50 MG EACH
     Route: 048

REACTIONS (3)
  - DRUG INTERACTION [None]
  - HYPOTHERMIA [None]
  - MULTIPLE DRUG OVERDOSE [None]
